FAERS Safety Report 14416970 (Version 13)
Quarter: 2020Q3

REPORT INFORMATION
  Report Type: Spontaneous
  Country: US (occurrence: US)
  Receive Date: 20180122
  Receipt Date: 20200929
  Transmission Date: 20201102
  Serious: No
  Sender: FDA-Public Use
  Company Number: US-PFIZER INC-2018025171

PATIENT
  Age: 64 Year
  Sex: Female
  Weight: 90 kg

DRUGS (7)
  1. IBRANCE [Suspect]
     Active Substance: PALBOCICLIB
     Dosage: 125 MG, 1X/DAY [ONCE DAILY WITH FOOD, TWENTY?EIGHT (28) CAPSULES]
     Route: 048
  2. IBRANCE [Suspect]
     Active Substance: PALBOCICLIB
     Dosage: 75 MG, UNK
  3. IBRANCE [Suspect]
     Active Substance: PALBOCICLIB
     Indication: OVARIAN CANCER
     Dosage: 125 MG, CYCLIC  (21 DAY ON AND 7 DAYS OFF)
     Route: 048
  4. IBRANCE [Suspect]
     Active Substance: PALBOCICLIB
     Dosage: 125 MG, CYCLIC (21 DAY ON AND 7 DAYS OFF)
     Route: 048
  5. FEMARA [Concomitant]
     Active Substance: LETROZOLE
     Indication: OVARIAN GRANULOSA CELL TUMOUR
     Dosage: 2 DF, DAILY (TWO 2.5MG TABLETS DAILY)
     Route: 048
     Dates: start: 2008
  6. IBRANCE [Suspect]
     Active Substance: PALBOCICLIB
     Indication: OVARIAN GRANULOSA CELL TUMOUR
     Dosage: 125 MG, CYCLIC  (21 DAY ON AND 7 DAYS OFF)
     Route: 048
     Dates: start: 20171230
  7. IBRANCE [Suspect]
     Active Substance: PALBOCICLIB
     Dosage: 125 MG, UNK

REACTIONS (7)
  - Off label use [Unknown]
  - Product dispensing error [Unknown]
  - Drug effective for unapproved indication [Unknown]
  - Product use in unapproved indication [Unknown]
  - Incorrect dose administered [Unknown]
  - White blood cell count decreased [Unknown]
  - Malaise [Not Recovered/Not Resolved]

NARRATIVE: CASE EVENT DATE: 20171230
